FAERS Safety Report 21186341 (Version 1)
Quarter: 2022Q3

REPORT INFORMATION
  Report Type: Spontaneous
  Country: US (occurrence: US)
  Receive Date: 20220808
  Receipt Date: 20220808
  Transmission Date: 20221027
  Serious: No
  Sender: FDA-Public Use
  Company Number: US-JNJFOC-20220761359

PATIENT
  Age: 80 Year
  Sex: Female
  Weight: 58.112 kg

DRUGS (1)
  1. REMICADE [Suspect]
     Active Substance: INFLIXIMAB
     Indication: Crohn^s disease
     Route: 041
     Dates: start: 20220723

REACTIONS (2)
  - Hot flush [Not Recovered/Not Resolved]
  - Insomnia [Unknown]
